FAERS Safety Report 18573520 (Version 4)
Quarter: 2021Q2

REPORT INFORMATION
  Report Type: Spontaneous
  Country: US (occurrence: US)
  Receive Date: 20201203
  Receipt Date: 20210408
  Transmission Date: 20210717
  Serious: No
  Sender: FDA-Public Use
  Company Number: US-JNJFOC-20201138362

PATIENT
  Age: 71 Year
  Sex: Male
  Weight: 94.89 kg

DRUGS (1)
  1. MENS ROGAINE EXTRA STRENGTH [Suspect]
     Active Substance: MINOXIDIL
     Indication: ALOPECIA
     Dosage: DOSE: 2 SPRAY OF FOAM A DAY
     Route: 061
     Dates: start: 202009, end: 202012

REACTIONS (4)
  - Incorrect dose administered [Unknown]
  - Application site haemorrhage [Recovered/Resolved]
  - Application site acne [Recovered/Resolved]
  - Dermatitis contact [Unknown]

NARRATIVE: CASE EVENT DATE: 202009
